FAERS Safety Report 8827234 (Version 1)
Quarter: 2012Q4

REPORT INFORMATION
  Report Type: 
  Country: MY (occurrence: MY)
  Receive Date: 20121005
  Receipt Date: 20121005
  Transmission Date: 20130627
  Serious: Yes (Other)
  Sender: FDA-Public Use
  Company Number: MY-ABBOTT-12P-101-0990614-00

PATIENT
  Age: 24 Year
  Sex: Female

DRUGS (1)
  1. HUMIRA [Suspect]
     Indication: PRODUCT USED FOR UNKNOWN INDICATION
     Route: 050
     Dates: start: 20120911

REACTIONS (4)
  - Mouth ulceration [Unknown]
  - Tongue ulceration [Unknown]
  - Rash [Unknown]
  - Lip swelling [Unknown]
